FAERS Safety Report 4738277-5 (Version None)
Quarter: 2005Q3

REPORT INFORMATION
  Report Type: 
  Country: None (occurrence: None)
  Receive Date: 20050803
  Receipt Date: 20050727
  Transmission Date: 20060218
  Serious: Yes (Hospitalization, Other)
  Sender: FDA-Public Use
  Company Number: ESWYE850921JUL05

PATIENT
  Age: 68 Year
  Sex: Male

DRUGS (5)
  1. RAPAMUNE [Suspect]
     Indication: PROPHYLAXIS AGAINST TRANSPLANT REJECTION
     Dosage: SEE IMAGE, ORAL
     Route: 048
     Dates: start: 20050410, end: 20050715
  2. RAPAMUNE [Suspect]
     Indication: PROPHYLAXIS AGAINST TRANSPLANT REJECTION
     Dosage: SEE IMAGE, ORAL
     Route: 048
     Dates: start: 20050716
  3. CELLCEPT [Concomitant]
  4. PREDNISONE [Concomitant]
  5. ZENAPAX [Concomitant]

REACTIONS (8)
  - ASTHENIA [None]
  - ATRIAL FIBRILLATION [None]
  - DEHYDRATION [None]
  - DIARRHOEA [None]
  - DRUG LEVEL BELOW THERAPEUTIC [None]
  - KIDNEY TRANSPLANT REJECTION [None]
  - NAUSEA [None]
  - NEPHROPATHY TOXIC [None]
